FAERS Safety Report 17428381 (Version 1)
Quarter: 2020Q1

REPORT INFORMATION
  Report Type: Spontaneous
  Country: US (occurrence: US)
  Receive Date: 20200218
  Receipt Date: 20200218
  Transmission Date: 20200409
  Serious: Yes (Other)
  Sender: FDA-Public Use
  Company Number: US-TEVA-2020-US-1186675

PATIENT
  Sex: Male

DRUGS (7)
  1. TOPIRAMATE. [Concomitant]
     Active Substance: TOPIRAMATE
     Dosage: 75 MG DAILY
  2. DURACEF [Concomitant]
     Indication: ACNE
  3. SYNTHROID [Concomitant]
     Active Substance: LEVOTHYROXINE SODIUM
     Dosage: 175 MCG DAILY
  4. TESTOSTERONE. [Concomitant]
     Active Substance: TESTOSTERONE
     Dosage: PELLET INJECTED UNDER SKIN SURFACE
     Dates: start: 20200106
  5. BUPROPION HYDROCHLORIDE TEVA [Suspect]
     Active Substance: BUPROPION HYDROCHLORIDE
     Dosage: 300 MG; EXTENDED OR SUSTAINED RELEASE TABLETS
     Route: 065
     Dates: start: 20200203, end: 20200204
  6. LAMOTRIGINE. [Concomitant]
     Active Substance: LAMOTRIGINE
     Dosage: 550 MG DAILY
  7. ROPHATE [Concomitant]
     Indication: ROSACEA
     Dosage: RHOFADE

REACTIONS (4)
  - Visual impairment [Recovered/Resolved]
  - Road traffic accident [Unknown]
  - Near death experience [Recovered/Resolved]
  - Product substitution issue [Unknown]
